FAERS Safety Report 26056669 (Version 1)
Quarter: 2025Q4

REPORT INFORMATION
  Report Type: Spontaneous
  Country: US (occurrence: US)
  Receive Date: 20251118
  Receipt Date: 20251118
  Transmission Date: 20260117
  Serious: No
  Sender: AMNEAL
  Company Number: US-AMNEAL PHARMACEUTICALS-2025-AMRX-00370

PATIENT

DRUGS (1)
  1. ISOTRETINOIN [Suspect]
     Active Substance: ISOTRETINOIN
     Indication: Product used for unknown indication
     Dosage: 30MG
     Route: 065

REACTIONS (10)
  - Acne pustular [Unknown]
  - Skin fissures [Unknown]
  - Skin exfoliation [Unknown]
  - Dry skin [Not Recovered/Not Resolved]
  - Lip dry [Not Recovered/Not Resolved]
  - Erythema [Unknown]
  - Acne cystic [Unknown]
  - Acne [Unknown]
  - Cheilitis [Not Recovered/Not Resolved]
  - Scar [Unknown]
